FAERS Safety Report 9262693 (Version 1)
Quarter: 2013Q2

REPORT INFORMATION
  Report Type: Spontaneous
  Country: US (occurrence: US)
  Receive Date: 20130430
  Receipt Date: 20130430
  Transmission Date: 20140414
  Serious: No
  Sender: FDA-Public Use
  Company Number: US-PFIZER INC-2013129721

PATIENT
  Age: 70 Year
  Sex: Male
  Weight: 68 kg

DRUGS (10)
  1. SUTENT [Suspect]
     Dosage: 37.5 MG, UNK
     Dates: start: 20130401
  2. TAZTIA XT [Concomitant]
     Dosage: UNK
  3. METOPROLOL [Concomitant]
     Dosage: UNK
  4. FERROUS SULFATE [Concomitant]
     Dosage: UNK
  5. TRAZODONE [Concomitant]
     Dosage: UNK
  6. PRILOSEC [Concomitant]
     Dosage: UNK
  7. COUMADINE [Concomitant]
     Dosage: UNK
  8. LISINOPRIL [Concomitant]
     Dosage: UNK
  9. POTASSIUM [Concomitant]
     Dosage: UNK
  10. LASIX [Concomitant]
     Dosage: UNK

REACTIONS (1)
  - Feeling hot [Unknown]
